FAERS Safety Report 9949305 (Version 4)
Quarter: 2014Q1

REPORT INFORMATION
  Report Type: Spontaneous
  Country: TR (occurrence: TR)
  Receive Date: 20140304
  Receipt Date: 20140318
  Transmission Date: 20141002
  Serious: Yes (Life-Threatening, Hospitalization)
  Sender: FDA-Public Use
  Company Number: TR-ROCHE-1358626

PATIENT
  Age: 48 Year
  Sex: Female

DRUGS (3)
  1. XOLAIR [Suspect]
     Indication: ASTHMA
     Route: 058
     Dates: start: 20140220, end: 20140220
  2. XOLAIR [Suspect]
     Route: 058
  3. FORADIL COMBI [Concomitant]
     Route: 065

REACTIONS (1)
  - Acute respiratory distress syndrome [Recovering/Resolving]
